FAERS Safety Report 4308423-6 (Version None)
Quarter: 2004Q1

REPORT INFORMATION
  Report Type: 
  Country: None (occurrence: None)
  Receive Date: 20040301
  Receipt Date: 20021219
  Transmission Date: 20041129
  Serious: No
  Sender: FDA-Public Use
  Company Number: WAES 0401USA01796

PATIENT
  Age: 82 Year
  Sex: Male

DRUGS (3)
  1. AMINO ACIDS (UNSPECIFIED) [Concomitant]
     Indication: ENZYME SUPPLEMENTATION
     Dates: start: 20040121, end: 20040124
  2. PRIMAXIN [Suspect]
     Indication: INFECTIOUS DISEASE CARRIER
     Route: 042
     Dates: start: 20040121, end: 20040124
  3. POTASSIUM CHLORIDE [Concomitant]
     Dates: start: 20040122

REACTIONS (5)
  - HERPES SIMPLEX [None]
  - INJECTION SITE PHLEBITIS [None]
  - INJECTION SITE VESICLES [None]
  - SKIN NECROSIS [None]
  - SKIN ULCER [None]
